FAERS Safety Report 19239461 (Version 4)
Quarter: 2021Q2

REPORT INFORMATION
  Report Type: Report from Study
  Country: None (occurrence: ES)
  Receive Date: 20210511
  Receipt Date: 20210531
  Transmission Date: 20210717
  Serious: Yes (Life-Threatening, Hospitalization)
  Sender: FDA-Public Use
  Company Number: ES-ABBVIE-21K-144-3897821-00

PATIENT
  Age: 58 Year
  Sex: Male

DRUGS (2)
  1. DUODOPA [Suspect]
     Active Substance: CARBIDOPA\LEVODOPA
     Indication: PARKINSON^S DISEASE
     Route: 050
     Dates: start: 20201118, end: 20210506
  2. DUODOPA [Suspect]
     Active Substance: CARBIDOPA\LEVODOPA
     Route: 050
     Dates: start: 20210521

REACTIONS (3)
  - Duodenal ulcer [Recovered/Resolved]
  - Abdominal pain [Unknown]
  - Duodenal perforation [Recovering/Resolving]

NARRATIVE: CASE EVENT DATE: 202105
